FAERS Safety Report 22319751 (Version 2)
Quarter: 2024Q3

REPORT INFORMATION
  Report Type: Spontaneous
  Country: JP (occurrence: JP)
  Receive Date: 20230515
  Receipt Date: 20240802
  Transmission Date: 20241017
  Serious: Yes (Other)
  Sender: MYLAN
  Company Number: JP-VIATRISJAPAN-2023M1048507AA

PATIENT
  Age: 45 Year
  Sex: Male
  Weight: 92 kg

DRUGS (11)
  1. EFFEXOR XR [Suspect]
     Active Substance: VENLAFAXINE HYDROCHLORIDE
     Indication: Bipolar disorder
     Dosage: 3 CAPSULES, QD, EVERY DAY
     Route: 048
  2. ABILIFY [Suspect]
     Active Substance: ARIPIPRAZOLE
     Indication: Bipolar disorder
     Dosage: 6 MILLIGRAM, QD, EVERY DAY
     Route: 048
     Dates: start: 20170310, end: 20201206
  3. LATUDA [Concomitant]
     Active Substance: LURASIDONE HYDROCHLORIDE
     Indication: Bipolar disorder
     Dosage: 20 MILLIGRAM, QD
     Route: 048
     Dates: start: 20201207, end: 20210726
  4. LATUDA [Concomitant]
     Active Substance: LURASIDONE HYDROCHLORIDE
     Dosage: 40 MILLIGRAM, QD
     Route: 048
     Dates: start: 20210727, end: 20210805
  5. LATUDA [Concomitant]
     Active Substance: LURASIDONE HYDROCHLORIDE
     Dosage: 60 MILLIGRAM, QD
     Route: 048
     Dates: start: 20210806
  6. TANDOSPIRONE CITRATE [Concomitant]
     Active Substance: TANDOSPIRONE CITRATE
     Indication: Product used for unknown indication
     Dosage: UNK
     Route: 065
  7. LAMICTAL [Concomitant]
     Active Substance: LAMOTRIGINE
     Indication: Bipolar disorder
     Dosage: 200 MILLIGRAM, QD, EVERY DAY
     Route: 048
  8. BELSOMRA [Concomitant]
     Active Substance: SUVOREXANT
     Indication: Insomnia
     Dosage: 20 MILLIGRAM, QD, EVERY DAY
     Route: 048
     Dates: end: 20201206
  9. DAYVIGO [Concomitant]
     Active Substance: LEMBOREXANT
     Indication: Insomnia
     Dosage: 5 MILLIGRAM, QD, EVERY DAY
     Route: 048
     Dates: start: 20201207
  10. LEVOMEPROMAZINE [Concomitant]
     Active Substance: LEVOMEPROMAZINE
     Indication: Bipolar disorder
     Dosage: 1-2 TABLETS, ONCE A WEEK
     Route: 048
     Dates: start: 20210719, end: 20210726
  11. LORAZEPAM [Concomitant]
     Active Substance: LORAZEPAM
     Indication: Anxiety
     Dosage: 0.5 MILLIGRAMS, 1-2 TIMES A DAY, EVERY DAY
     Route: 048
     Dates: end: 20210905

REACTIONS (3)
  - Somatic hallucination [Recovered/Resolved]
  - Oral discomfort [Recovered/Resolved]
  - Off label use [Unknown]

NARRATIVE: CASE EVENT DATE: 20201201
